FAERS Safety Report 22080710 (Version 4)
Quarter: 2023Q1

REPORT INFORMATION
  Report Type: Report from Study
  Country: US (occurrence: US)
  Receive Date: 20230309
  Receipt Date: 20230317
  Transmission Date: 20230418
  Serious: No
  Sender: FDA-Public Use
  Company Number: US-002147023-NVSC2023US051028

PATIENT
  Sex: Male

DRUGS (1)
  1. COSENTYX [Suspect]
     Active Substance: SECUKINUMAB
     Indication: Product used for unknown indication
     Dosage: 300 MG, QMO (SINCE 7 YEARS) (2 COSENTYX PREFILLED SYRINGES)
     Route: 065

REACTIONS (6)
  - Device leakage [Unknown]
  - Device defective [Unknown]
  - Gastrointestinal disorder [Unknown]
  - Drug intolerance [Unknown]
  - Incorrect dose administered by device [Unknown]
  - Drug dose omission by device [Unknown]
